FAERS Safety Report 9418269 (Version 1)
Quarter: 2013Q3

REPORT INFORMATION
  Report Type: Spontaneous
  Country: US (occurrence: US)
  Receive Date: 20130724
  Receipt Date: 20130724
  Transmission Date: 20140515
  Serious: No
  Sender: FDA-Public Use
  Company Number: US-009507513-1307USA011484

PATIENT
  Sex: 0

DRUGS (1)
  1. INVANZ [Suspect]

REACTIONS (3)
  - Incorrect product storage [Unknown]
  - Drug administration error [Unknown]
  - No adverse event [Unknown]
